FAERS Safety Report 8531835-1 (Version None)
Quarter: 2012Q3

REPORT INFORMATION
  Report Type: 
  Country: None (occurrence: None)
  Receive Date: 20120716
  Receipt Date: 20120716
  Transmission Date: 20120928
  Serious: No
  Sender: FDA-Public Use
  Company Number: None

PATIENT
  Sex: Male

DRUGS (2)
  1. LIPITOR [Suspect]
     Indication: HYPERLIPIDAEMIA
     Dosage: 80MG DAILY BY MOUTH
     Route: 048
  2. CARVEDILOL [Suspect]
     Indication: CARDIOMYOPATHY
     Dosage: 25MG TWICE DAILY BY MOUTH
     Route: 048
     Dates: start: 20100101

REACTIONS (3)
  - PRODUCT SUBSTITUTION ISSUE [None]
  - NAUSEA [None]
  - VOMITING [None]
